FAERS Safety Report 13786651 (Version 1)
Quarter: 2017Q3

REPORT INFORMATION
  Report Type: Spontaneous
  Country: US (occurrence: US)
  Receive Date: 20170725
  Receipt Date: 20170725
  Transmission Date: 20171127
  Serious: Yes (Other)
  Sender: FDA-Public Use
  Company Number: None

PATIENT
  Age: 73 Year
  Sex: Male

DRUGS (19)
  1. ALENDRONATE [Concomitant]
     Active Substance: ALENDRONATE SODIUM
  2. ASPIRIN 81 [Concomitant]
     Active Substance: ASPIRIN
  3. CIPROFLOXACIN. [Concomitant]
     Active Substance: CIPROFLOXACIN
  4. CLOPIDOGREL [Concomitant]
     Active Substance: CLOPIDOGREL BISULFATE
  5. LOSARTAN-HCTZ [Concomitant]
     Active Substance: HYDROCHLOROTHIAZIDE\LOSARTAN
  6. TAMSULOSIN [Concomitant]
     Active Substance: TAMSULOSIN
  7. SPRYCEL [Suspect]
     Active Substance: DASATINIB
     Indication: CHRONIC MYELOID LEUKAEMIA
     Route: 048
     Dates: start: 20170614, end: 20170725
  8. ONDANSETRON [Concomitant]
     Active Substance: ONDANSETRON
  9. ATORVASTATIN [Concomitant]
     Active Substance: ATORVASTATIN
  10. COQ10 [Concomitant]
     Active Substance: UBIDECARENONE
  11. IMATINIB [Concomitant]
     Active Substance: IMATINIB
  12. METFORMIN [Concomitant]
     Active Substance: METFORMIN HYDROCHLORIDE
  13. ERGOCALCIFEROL. [Concomitant]
     Active Substance: ERGOCALCIFEROL
  14. METOPROLOL. [Concomitant]
     Active Substance: METOPROLOL
  15. SYNTHROID [Concomitant]
     Active Substance: LEVOTHYROXINE SODIUM
  16. AMLODIPINE [Concomitant]
     Active Substance: AMLODIPINE BESYLATE
  17. BOSULIF [Concomitant]
     Active Substance: BOSUTINIB MONOHYDRATE
  18. PANTOPRAZOLE [Concomitant]
     Active Substance: PANTOPRAZOLE
  19. TASIGNA [Concomitant]
     Active Substance: NILOTINIB

REACTIONS (1)
  - Acne [None]

NARRATIVE: CASE EVENT DATE: 20170725
